FAERS Safety Report 6532936-X (Version None)
Quarter: 2010Q1

REPORT INFORMATION
  Report Type: 
  Country: None (occurrence: None)
  Receive Date: 20100105
  Receipt Date: 20091228
  Transmission Date: 20100710
  Serious: Yes (Hospitalization)
  Sender: FDA-Public Use
  Company Number: 2009US004183

PATIENT
  Age: 74 Year
  Sex: Female

DRUGS (13)
  1. LEXISCAN [Suspect]
     Indication: CHEST PAIN
     Dosage: 5 ML, TOTAL DOSE, IV NOS
     Route: 042
     Dates: start: 20091120, end: 20091120
  2. LEXISCAN [Suspect]
     Indication: SCAN MYOCARDIAL PERFUSION
     Dosage: 5 ML, TOTAL DOSE, IV NOS
     Route: 042
     Dates: start: 20091120, end: 20091120
  3. ASPIRIN [Concomitant]
  4. AMLODIPINE [Concomitant]
  5. DETROL [Concomitant]
  6. LASIX [Concomitant]
  7. HYDROCODONE (HYDROCODONE) [Concomitant]
  8. ISOBID (ISOSORBIDE DINITRATE) [Concomitant]
  9. LEVOXYL [Concomitant]
  10. METOPROLOL (METOPROLOL) [Concomitant]
  11. PLAVIX [Concomitant]
  12. ALDACTONE [Concomitant]
  13. DIAZEPAM [Concomitant]

REACTIONS (4)
  - BLOOD PRESSURE DECREASED [None]
  - CEREBROVASCULAR ACCIDENT [None]
  - LOSS OF CONSCIOUSNESS [None]
  - PALLOR [None]
